FAERS Safety Report 8923808 (Version 2)
Quarter: 2013Q1

REPORT INFORMATION
  Report Type: Report from Study
  Country: US (occurrence: US)
  Receive Date: 20121126
  Receipt Date: 20130109
  Transmission Date: 20140127
  Serious: Yes (Life-Threatening, Hospitalization)
  Sender: FDA-Public Use
  Company Number: US-EISAI INC-E7389-03263-CLI-US

PATIENT
  Age: 56 Year
  Sex: Female
  Weight: 89 kg

DRUGS (21)
  1. HALAVEN [Suspect]
     Indication: BREAST CANCER
     Route: 041
     Dates: start: 20121026
  2. TOPROL [Concomitant]
     Dates: start: 2000, end: 20121115
  3. ZESTRIL [Concomitant]
     Dates: start: 2010, end: 20121111
  4. LIPITOR [Concomitant]
     Dates: start: 2000
  5. AMBIEN [Concomitant]
     Dates: start: 2008
  6. KAPIDEX [Concomitant]
     Dates: start: 2011
  7. PEPCID [Concomitant]
     Dates: start: 2012
  8. TYLENOL [Concomitant]
     Dates: start: 2011
  9. LORTAB [Concomitant]
     Dates: start: 2012
  10. CYMBALTA [Concomitant]
     Dates: start: 2010
  11. WELLBUTRIN [Concomitant]
     Dates: start: 2010
  12. NEURONTIN [Concomitant]
     Dates: start: 2007
  13. WARFARIN [Concomitant]
  14. IOHEXOL [Concomitant]
  15. ONDANSETRON [Concomitant]
  16. IPRATROPIUM [Concomitant]
  17. SALBUTAMOL [Concomitant]
  18. HYDROCODONE [Concomitant]
  19. PARACETAMOL [Concomitant]
  20. SODIUM CHLORIDE [Concomitant]
  21. PANTOPRAZOLE [Concomitant]

REACTIONS (1)
  - Pulmonary embolism [Recovered/Resolved]
